FAERS Safety Report 7824715-8 (Version None)
Quarter: 2011Q4

REPORT INFORMATION
  Report Type: 
  Country: None (occurrence: None)
  Receive Date: 20111019
  Receipt Date: 20111010
  Transmission Date: 20120403
  Serious: Yes (Other)
  Sender: FDA-Public Use
  Company Number: PHHY2011US58522

PATIENT
  Sex: Female

DRUGS (5)
  1. BACLOFEN [Concomitant]
     Indication: MUSCLE SPASMS
     Dosage: 20 MG, UNK
     Route: 048
     Dates: start: 20040101
  2. TOPAMAX [Concomitant]
     Route: 048
  3. EXTAVIA [Suspect]
     Indication: MULTIPLE SCLEROSIS
     Dosage: 0.25 MG, QOD
     Route: 058
  4. PROVIGIL [Concomitant]
     Dosage: 300 G, UNK
     Route: 048
     Dates: start: 20100101
  5. NEURONTIN [Concomitant]
     Dosage: 600 UG, UNK
     Route: 048
     Dates: start: 20080101

REACTIONS (11)
  - FEAR [None]
  - FATIGUE [None]
  - MOTOR DYSFUNCTION [None]
  - SPEECH DISORDER [None]
  - PAIN [None]
  - INJECTION SITE HAEMORRHAGE [None]
  - INJECTION SITE HAEMATOMA [None]
  - BLADDER DISORDER [None]
  - ASTHENIA [None]
  - DRUG INEFFECTIVE [None]
  - INTERVERTEBRAL DISC PROTRUSION [None]
